FAERS Safety Report 19040971 (Version 1)
Quarter: 2021Q1

REPORT INFORMATION
  Report Type: Spontaneous
  Country: US (occurrence: US)
  Receive Date: 20210322
  Receipt Date: 20210322
  Transmission Date: 20210420
  Serious: No
  Sender: FDA-Public Use
  Company Number: US-009507513-2103USA003844

PATIENT
  Age: 65 Year
  Sex: Male

DRUGS (12)
  1. ETOPOSIDE. [Concomitant]
     Active Substance: ETOPOSIDE
     Indication: NEUROENDOCRINE CARCINOMA OF PROSTATE
     Dosage: UNK, Q3W
  2. ETOPOSIDE. [Concomitant]
     Active Substance: ETOPOSIDE
     Indication: PROSTATE CANCER METASTATIC
  3. OLAPARIB. [Concomitant]
     Active Substance: OLAPARIB
     Indication: PROSTATE CANCER METASTATIC
  4. ABIRATERONE. [Concomitant]
     Active Substance: ABIRATERONE ACETATE
     Indication: NEUROENDOCRINE CARCINOMA OF PROSTATE
  5. OLAPARIB. [Concomitant]
     Active Substance: OLAPARIB
     Indication: NEUROENDOCRINE CARCINOMA OF PROSTATE
     Dosage: 300 MILLIGRAM, BID
     Route: 048
  6. KEYTRUDA [Suspect]
     Active Substance: PEMBROLIZUMAB
     Indication: NEUROENDOCRINE CARCINOMA OF PROSTATE
     Dosage: 200 MILLIGRAM, Q3W
  7. ABIRATERONE. [Concomitant]
     Active Substance: ABIRATERONE ACETATE
     Indication: PROSTATE CANCER METASTATIC
  8. KEYTRUDA [Suspect]
     Active Substance: PEMBROLIZUMAB
     Indication: PROSTATE CANCER METASTATIC
  9. LEUPROLIDE [Concomitant]
     Active Substance: LEUPROLIDE
     Indication: NEUROENDOCRINE CARCINOMA OF PROSTATE
  10. LEUPROLIDE [Concomitant]
     Active Substance: LEUPROLIDE
     Indication: PROSTATE CANCER METASTATIC
  11. CARBOPLATIN. [Concomitant]
     Active Substance: CARBOPLATIN
     Indication: NEUROENDOCRINE CARCINOMA OF PROSTATE
     Dosage: UNK, Q3W
  12. CARBOPLATIN. [Concomitant]
     Active Substance: CARBOPLATIN
     Indication: PROSTATE CANCER METASTATIC

REACTIONS (1)
  - Off label use [Unknown]
